FAERS Safety Report 6496959-1 (Version None)
Quarter: 2009Q4

REPORT INFORMATION
  Report Type: 
  Country: None (occurrence: None)
  Receive Date: 20091215
  Receipt Date: 20081107
  Transmission Date: 20100525
  Serious: No
  Sender: FDA-Public Use
  Company Number: A0755593A

PATIENT
  Age: 64 Year
  Sex: Male

DRUGS (8)
  1. AVODART [Suspect]
     Indication: BENIGN PROSTATIC HYPERPLASIA
     Dosage: .5MG PER DAY
     Route: 048
     Dates: start: 20080927
  2. HYDROCHLOROTHIAZIDE [Concomitant]
  3. CELEBREX [Concomitant]
  4. FLOMAX [Concomitant]
  5. RANITIDINE [Concomitant]
  6. LUNESTA [Concomitant]
  7. SAW PALMETTO [Concomitant]
  8. VITAMIN B6 [Concomitant]

REACTIONS (1)
  - MUSCLE SPASMS [None]
